FAERS Safety Report 4969419-4 (Version None)
Quarter: 2006Q2

REPORT INFORMATION
  Report Type: 
  Country: None (occurrence: None)
  Receive Date: 20060405
  Receipt Date: 20060328
  Transmission Date: 20061013
  Serious: Yes (Hospitalization, Other)
  Sender: FDA-Public Use
  Company Number: 2006AL000826

PATIENT
  Age: 60 Year
  Sex: Male

DRUGS (9)
  1. GABAPENTIN [Suspect]
     Indication: PAIN
     Dosage: 900 MG; QD; UNKNOWN
     Route: 065
  2. FUZEON [Suspect]
     Indication: HIV INFECTION
     Dosage: 90 MG; UNK; UNK
     Route: 065
     Dates: start: 20040504
  3. TRICOR [Concomitant]
  4. GLYBURIDE [Concomitant]
  5. ZIAGEN [Concomitant]
  6. ATAZANAVIR [Concomitant]
  7. GLUCOPHAGE [Concomitant]
  8. CELEBREX [Concomitant]
  9. PRAVACHOL [Concomitant]

REACTIONS (44)
  - ABDOMINAL PAIN [None]
  - ANGER [None]
  - BLOOD CHOLESTEROL INCREASED [None]
  - BLOOD GLUCOSE DECREASED [None]
  - BLOOD GLUCOSE INCREASED [None]
  - BLOOD PRESSURE INCREASED [None]
  - BLOOD TRIGLYCERIDES INCREASED [None]
  - CLUMSINESS [None]
  - CONDITION AGGRAVATED [None]
  - CONSTIPATION [None]
  - DEHYDRATION [None]
  - DEPRESSION [None]
  - DEVICE FAILURE [None]
  - DEVICE MALFUNCTION [None]
  - DIZZINESS [None]
  - DRY MOUTH [None]
  - DRY SKIN [None]
  - FALL [None]
  - FATIGUE [None]
  - FIBROMYALGIA [None]
  - FOOT FRACTURE [None]
  - HAEMATOCRIT DECREASED [None]
  - HALLUCINATION [None]
  - HAND FRACTURE [None]
  - HYPOAESTHESIA [None]
  - INFLUENZA [None]
  - INJECTION SITE INFLAMMATION [None]
  - INJECTION SITE PAIN [None]
  - INJECTION SITE REACTION [None]
  - INSOMNIA [None]
  - INTERVERTEBRAL DISC DISORDER [None]
  - MOVEMENT DISORDER [None]
  - NERVOUSNESS [None]
  - OFF LABEL USE [None]
  - PAIN [None]
  - PAIN IN EXTREMITY [None]
  - PARAESTHESIA [None]
  - POLLAKIURIA [None]
  - SPINAL CORD HERNIATION [None]
  - T-LYMPHOCYTE COUNT DECREASED [None]
  - VIRAL LOAD DECREASED [None]
  - VISION BLURRED [None]
  - WALKING AID USER [None]
  - WEIGHT DECREASED [None]
